FAERS Safety Report 6261805-8 (Version None)
Quarter: 2009Q3

REPORT INFORMATION
  Report Type: 
  Country: None (occurrence: None)
  Receive Date: 20090709
  Receipt Date: 20090706
  Transmission Date: 20100115
  Serious: Yes (Hospitalization, Other)
  Sender: FDA-Public Use
  Company Number: US-ASTRAZENECA-2008UW27614

PATIENT
  Age: 15005 Day
  Sex: Female
  Weight: 112.5 kg

DRUGS (7)
  1. SEROQUEL [Suspect]
     Indication: DEPRESSION
     Dosage: 25 TO 200 MG
     Route: 048
     Dates: start: 20041104, end: 20050714
  2. SEROQUEL [Suspect]
     Indication: MENTAL DISORDER
     Dosage: 25 TO 200 MG
     Route: 048
     Dates: start: 20041104, end: 20050714
  3. ABILIFY [Concomitant]
     Dosage: 15 TO 30 MG
     Dates: start: 20040101
  4. HALDOL [Concomitant]
     Dates: start: 19880101
  5. RISPERDAL [Concomitant]
     Dates: start: 19880101
  6. ZYPREXA [Concomitant]
     Dates: start: 19990401, end: 20030101
  7. CLOZARIL [Concomitant]
     Dates: start: 20060101

REACTIONS (6)
  - ABDOMINAL PAIN [None]
  - BLOOD CHOLESTEROL INCREASED [None]
  - CYSTITIS [None]
  - DIABETES MELLITUS [None]
  - GALLBLADDER DISORDER [None]
  - PANCREATITIS [None]
